FAERS Safety Report 7394465 (Version 7)
Quarter: 2012Q4

REPORT INFORMATION
  Report Type: Report from Study
  Country: DE (occurrence: DE)
  Receive Date: 20100520
  Receipt Date: 20121016
  Transmission Date: 20130627
  Serious: Yes (Hospitalization)
  Sender: FDA-Public Use
  Company Number: DE-AMGEN-KDC411814

PATIENT
  Age: 55 Year
  Sex: Male
  Weight: 115 kg

DRUGS (5)
  1. ROMIPLOSTIM [Suspect]
     Indication: IDIOPATHIC THROMBOCYTOPENIC PURPURA
     Dosage: UNK UNK, qwk
     Route: 058
     Dates: start: 20090904
  2. PREDNISOLONE [Concomitant]
     Dosage: 40 mg, UNK
  3. BERLOSIN [Concomitant]
     Dosage: 20 mg, UNK
  4. ASS [Concomitant]
  5. ZEFFIX [Concomitant]

REACTIONS (1)
  - Endocarditis [Recovered/Resolved]
